FAERS Safety Report 7503621-2 (Version None)
Quarter: 2011Q2

REPORT INFORMATION
  Report Type: 
  Country: None (occurrence: None)
  Receive Date: 20110518
  Receipt Date: 20110510
  Transmission Date: 20111010
  Serious: Yes (Life-Threatening, Hospitalization)
  Sender: FDA-Public Use
  Company Number: 2011MA005795

PATIENT
  Age: 84 Year
  Sex: Female

DRUGS (5)
  1. CELEBREX [Suspect]
     Dosage: 100 MG, QD
     Dates: start: 20110421
  2. AZITHROMYCIN (NO PREF. NAME) [Suspect]
     Indication: INFECTION
     Dosage: 500 MG, QD
     Dates: start: 20110421, end: 20110421
  3. LISINOPRIL [Concomitant]
  4. HYDROCHLOROTHIAZIDE [Suspect]
     Indication: HYPERTENSION
     Dosage: 12.5 MG
     Dates: start: 20110301
  5. LISINOPRIL [Suspect]
     Indication: HYPERTENSION
     Dosage: 10 MG, QD
     Dates: start: 20110417, end: 20110425

REACTIONS (2)
  - ANGIOEDEMA [None]
  - SKIN PLAQUE [None]
